FAERS Safety Report 4264579-5 (Version None)
Quarter: 2004Q1

REPORT INFORMATION
  Report Type: 
  Country: None (occurrence: None)
  Receive Date: 20040105
  Receipt Date: 20031218
  Transmission Date: 20041129
  Serious: Yes (Hospitalization)
  Sender: FDA-Public Use
  Company Number: 200320605US

PATIENT
  Sex: Female

DRUGS (1)
  1. AMARYL [Suspect]

REACTIONS (1)
  - LOSS OF CONSCIOUSNESS [None]
